FAERS Safety Report 6253533-X (Version None)
Quarter: 2009Q2

REPORT INFORMATION
  Report Type: 
  Country: None (occurrence: None)
  Receive Date: 20090629
  Receipt Date: 20090629
  Transmission Date: 20091009
  Serious: Yes (Other)
  Sender: FDA-Public Use
  Company Number: None

PATIENT
  Age: 3 Year
  Sex: Female
  Weight: 16 kg

DRUGS (1)
  1. SINGULAIR [Suspect]
     Indication: LUNG DISORDER
     Dosage: 5 MG ONCE DAILY PO
     Route: 048
     Dates: start: 20090301, end: 20090331

REACTIONS (6)
  - AGGRESSION [None]
  - ANGER [None]
  - MIDDLE INSOMNIA [None]
  - NIGHTMARE [None]
  - SCREAMING [None]
  - SELF INJURIOUS BEHAVIOUR [None]
